FAERS Safety Report 6882222-3 (Version None)
Quarter: 2010Q3

REPORT INFORMATION
  Report Type: 
  Country: None (occurrence: None)
  Receive Date: 20100702
  Receipt Date: 20090605
  Transmission Date: 20110219
  Serious: Yes (Other)
  Sender: FDA-Public Use
  Company Number: 2009206644

PATIENT

DRUGS (3)
  1. ZOLOFT [Suspect]
  2. PAXIL [Suspect]
  3. AMITRIPTYLINE HYDROCHLORIDE [Suspect]

REACTIONS (1)
  - SEROTONIN SYNDROME [None]
